FAERS Safety Report 17824054 (Version 4)
Quarter: 2020Q3

REPORT INFORMATION
  Report Type: Other
  Country: CA (occurrence: CA)
  Receive Date: 20200526
  Receipt Date: 20200816
  Transmission Date: 20201102
  Serious: Yes (Hospitalization, Other)
  Sender: FDA-Public Use
  Company Number: CA-ROCHE-2498781

PATIENT
  Age: 51 Year
  Sex: Male

DRUGS (5)
  1. PERCOCET [Concomitant]
     Active Substance: ACETAMINOPHEN\OXYCODONE HYDROCHLORIDE
  2. OCREVUS [Suspect]
     Active Substance: OCRELIZUMAB
     Indication: PRIMARY PROGRESSIVE MULTIPLE SCLEROSIS
     Dosage: 300 MG AT DAY 0 AND 14, THEN 600 MG EVERY 6 MONTH.
     Route: 042
     Dates: start: 20180613
  3. FAMPYRA [Concomitant]
     Active Substance: DALFAMPRIDINE
  4. BACLOFEN. [Concomitant]
     Active Substance: BACLOFEN
  5. ADVIL [Concomitant]
     Active Substance: IBUPROFEN

REACTIONS (5)
  - Nephrolithiasis [Recovered/Resolved]
  - Pain in extremity [Not Recovered/Not Resolved]
  - Multiple sclerosis [Not Recovered/Not Resolved]
  - Coccydynia [Not Recovered/Not Resolved]
  - Nephrolithiasis [Recovered/Resolved]

NARRATIVE: CASE EVENT DATE: 201910
